FAERS Safety Report 23118127 (Version 1)
Quarter: 2023Q4

REPORT INFORMATION
  Report Type: Spontaneous
  Country: ES (occurrence: ES)
  Receive Date: 20231027
  Receipt Date: 20231027
  Transmission Date: 20240109
  Serious: Yes (Hospitalization, Other)
  Sender: FDA-Public Use
  Company Number: ES-GILEAD-2023-0648721

PATIENT
  Age: 47 Year
  Sex: Female

DRUGS (1)
  1. YESCARTA [Suspect]
     Active Substance: AXICABTAGENE CILOLEUCEL
     Indication: Diffuse large B-cell lymphoma
     Dosage: UNK
     Route: 042
     Dates: start: 20210823, end: 20210823

REACTIONS (20)
  - Cytomegalovirus infection reactivation [Unknown]
  - Myelosuppression [Unknown]
  - Respiratory tract infection [Unknown]
  - Respiratory tract infection [Unknown]
  - Pneumonia [Unknown]
  - Periorbital cellulitis [Unknown]
  - Haemophilus infection [Unknown]
  - Neurotoxicity [Unknown]
  - Cytokine release syndrome [Unknown]
  - Pyrexia [Unknown]
  - Human herpesvirus 6 infection [Unknown]
  - Diarrhoea [Unknown]
  - Asthenia [Unknown]
  - Tremor [Unknown]
  - Memory impairment [Unknown]
  - Acute sinusitis [Unknown]
  - Blood lactate dehydrogenase increased [Unknown]
  - Neutrophil count decreased [Unknown]
  - Platelet count decreased [Unknown]
  - Visual acuity reduced [Unknown]

NARRATIVE: CASE EVENT DATE: 20211004
